FAERS Safety Report 4530156-1 (Version None)
Quarter: 2004Q4

REPORT INFORMATION
  Report Type: 
  Country: None (occurrence: None)
  Receive Date: 20041215
  Receipt Date: 20041215
  Transmission Date: 20050328
  Serious: Yes (Disabling)
  Sender: FDA-Public Use
  Company Number: None

PATIENT
  Age: 76 Year

DRUGS (1)
  1. CEFAZOLIN [Suspect]
     Indication: STAPHYLOCOCCAL INFECTION
     Dosage: 1 GRAM ONCE DAILY INTRAVENOUS
     Route: 042
     Dates: start: 20041029, end: 20041101

REACTIONS (1)
  - DEAFNESS UNILATERAL [None]
